FAERS Safety Report 14880372 (Version 1)
Quarter: 2018Q2

REPORT INFORMATION
  Report Type: Spontaneous
  Country: DE (occurrence: DE)
  Receive Date: 20180511
  Receipt Date: 20180511
  Transmission Date: 20180711
  Serious: Yes (Other)
  Sender: FDA-Public Use
  Company Number: DE-PFIZER INC-2018189534

PATIENT
  Age: 58 Year
  Sex: Female

DRUGS (4)
  1. AZOPT [Suspect]
     Active Substance: BRINZOLAMIDE
     Dosage: LAST 4 WEEKS PRIOR TO THE DATE OF REPORT
  2. CLONID OPHTAL [Suspect]
     Active Substance: CLONIDINE HYDROCHLORIDE
     Dosage: UNK, 1X/DAY (FOR 13 YEARS)
  3. LATANOPROST. [Suspect]
     Active Substance: LATANOPROST
     Dosage: UNK
  4. DORZOCOMP VISION [Suspect]
     Active Substance: DORZOLAMIDE HYDROCHLORIDE\TIMOLOL MALEATE
     Dosage: UNK

REACTIONS (2)
  - Eye disorder [Unknown]
  - Drug ineffective [Unknown]
